FAERS Safety Report 25857717 (Version 1)
Quarter: 2025Q3

REPORT INFORMATION
  Report Type: Report from Study
  Country: CN (occurrence: CN)
  Receive Date: 20250929
  Receipt Date: 20250929
  Transmission Date: 20251021
  Serious: Yes (Other)
  Sender: UCB
  Company Number: CN-NEUROGEN (ZHUHAI) PHARMA CO., LTD.-2025NG05150

PATIENT
  Age: 57 Year
  Sex: Male

DRUGS (6)
  1. VIMPAT [Suspect]
     Active Substance: LACOSAMIDE
     Indication: Generalised tonic-clonic seizure
     Route: 048
  2. VIMPAT [Suspect]
     Active Substance: LACOSAMIDE
     Route: 048
  3. VIMPAT [Suspect]
     Active Substance: LACOSAMIDE
     Route: 048
  4. LEVETIRACETAM [Suspect]
     Active Substance: LEVETIRACETAM
     Indication: Generalised tonic-clonic seizure
     Route: 048
  5. LEVETIRACETAM [Suspect]
     Active Substance: LEVETIRACETAM
  6. OXCARBAZEPINE [Suspect]
     Active Substance: OXCARBAZEPINE
     Indication: Generalised tonic-clonic seizure
     Route: 048

REACTIONS (2)
  - Epilepsy [Not Recovered/Not Resolved]
  - Multiple-drug resistance [Unknown]
